FAERS Safety Report 19160174 (Version 1)
Quarter: 2021Q2

REPORT INFORMATION
  Report Type: Spontaneous
  Country: DE (occurrence: DE)
  Receive Date: 20210420
  Receipt Date: 20210420
  Transmission Date: 20210717
  Serious: Yes (Other)
  Sender: FDA-Public Use
  Company Number: NVSC2021DE053619

PATIENT
  Age: 8 Decade
  Sex: Female

DRUGS (3)
  1. PACLITAXEL. [Suspect]
     Active Substance: PACLITAXEL
     Indication: OVARIAN CANCER STAGE III
     Dosage: UNK, CYCLIC (EVERY 6 DAYS)
     Route: 065
     Dates: start: 20160108
  2. CARBOPLATIN. [Suspect]
     Active Substance: CARBOPLATIN
     Indication: OVARIAN CANCER STAGE III
     Dosage: UNK, CYCLIC (EVERY 6 DAYS)
     Route: 065
     Dates: start: 20160108
  3. BEVACIZUMAB. [Concomitant]
     Active Substance: BEVACIZUMAB
     Indication: OVARIAN CANCER STAGE III
     Dosage: UNK (7 INFUSIONS IN TOTAL FROM THE SECOND CYCLE OF CARBOPLATIN/PACLITAXEL)
     Route: 065
     Dates: start: 201601, end: 201605

REACTIONS (1)
  - Polyneuropathy [Recovered/Resolved with Sequelae]
